FAERS Safety Report 11591062 (Version 3)
Quarter: 2015Q4

REPORT INFORMATION
  Report Type: Spontaneous
  Country: US (occurrence: US)
  Receive Date: 20151003
  Receipt Date: 20151211
  Transmission Date: 20160304
  Serious: Yes (Other)
  Sender: FDA-Public Use
  Company Number: US-AMGEN-USASP2015100397

PATIENT
  Age: 36 Year
  Sex: Female

DRUGS (1)
  1. NPLATE [Suspect]
     Active Substance: ROMIPLOSTIM
     Indication: IMMUNE THROMBOCYTOPENIC PURPURA
     Dosage: 1 MUG/KG, UNK
     Route: 065
     Dates: start: 201505

REACTIONS (3)
  - Platelet count decreased [Unknown]
  - Therapeutic response decreased [Unknown]
  - Antibody test positive [Unknown]

NARRATIVE: CASE EVENT DATE: 20151103
